FAERS Safety Report 11036625 (Version 4)
Quarter: 2015Q3

REPORT INFORMATION
  Report Type: Report from Study
  Country: US (occurrence: US)
  Receive Date: 20150416
  Receipt Date: 20150911
  Transmission Date: 20151125
  Serious: Yes (Other)
  Sender: FDA-Public Use
  Company Number: US-AMGEN-USASP2015035357

PATIENT
  Age: 65 Year
  Sex: Female
  Weight: 48.73 kg

DRUGS (14)
  1. METHOTREXATE [Concomitant]
     Active Substance: METHOTREXATE
     Indication: ARTHRITIS
     Dosage: 1 ML, QWK (TAKEN FOR 5 YEARS)
     Route: 058
  2. CALCIUM [Concomitant]
     Active Substance: CALCIUM
     Dosage: UNK, QD
  3. MVI                                /01825701/ [Concomitant]
     Active Substance: VITAMINS
     Dosage: UNK UNK, QD
  4. FISH OIL [Concomitant]
     Active Substance: FISH OIL
     Dosage: UNK UNK, QD
  5. ENBREL [Suspect]
     Active Substance: ETANERCEPT
     Indication: SYSTEMIC LUPUS ERYTHEMATOSUS
  6. ENBREL [Suspect]
     Active Substance: ETANERCEPT
     Indication: SPONDYLOARTHROPATHY
  7. FOLIC ACID. [Concomitant]
     Active Substance: FOLIC ACID
     Dosage: 1 MG, DAILY
     Route: 048
  8. DEPO-MEDROL [Concomitant]
     Active Substance: METHYLPREDNISOLONE ACETATE
     Dosage: 160 MG, UNK
     Dates: start: 20150213
  9. GABAPENTIN. [Concomitant]
     Active Substance: GABAPENTIN
     Dosage: UNK
  10. VOLTAREN [Concomitant]
     Active Substance: DICLOFENAC SODIUM
  11. ENBREL [Suspect]
     Active Substance: ETANERCEPT
     Indication: RHEUMATOID ARTHRITIS
     Dosage: 50 MG, QWK
     Route: 058
     Dates: start: 201501
  12. MAGNESIUM [Concomitant]
     Active Substance: MAGNESIUM
     Dosage: UNK UNK, QD
  13. PREDNISONE. [Concomitant]
     Active Substance: PREDNISONE
     Indication: ARTHRITIS
     Dosage: 25 MG, QWK
     Route: 058
  14. QUINACRINE [Concomitant]
     Active Substance: QUINACRINE
     Dosage: UNK

REACTIONS (36)
  - Systemic lupus erythematosus [Unknown]
  - Arthritis [Unknown]
  - Pain in extremity [Unknown]
  - Neutrophil count increased [Unknown]
  - Lymphocyte count decreased [Unknown]
  - Hypoaesthesia [Unknown]
  - Back pain [Unknown]
  - Eosinophil count decreased [Unknown]
  - Viral infection [Unknown]
  - Vision blurred [Unknown]
  - Adverse reaction [Unknown]
  - Myalgia [Unknown]
  - Musculoskeletal pain [Unknown]
  - Drug effect incomplete [Unknown]
  - Condition aggravated [Unknown]
  - Pain [Unknown]
  - Joint effusion [Unknown]
  - Musculoskeletal stiffness [Unknown]
  - White blood cell count increased [Unknown]
  - Cough [Unknown]
  - Nodal osteoarthritis [Unknown]
  - Decreased appetite [Unknown]
  - Tenderness [Unknown]
  - Contusion [Unknown]
  - Ecchymosis [Unknown]
  - Fatigue [Unknown]
  - Bedridden [Recovered/Resolved]
  - Red cell distribution width increased [Unknown]
  - Swelling [Unknown]
  - Oedema [Unknown]
  - Influenza like illness [Unknown]
  - Neck pain [Unknown]
  - Pyrexia [Unknown]
  - Malaise [Unknown]
  - Synovitis [Unknown]
  - Injection site pain [Not Recovered/Not Resolved]

NARRATIVE: CASE EVENT DATE: 2015
